FAERS Safety Report 21371577 (Version 1)
Quarter: 2022Q3

REPORT INFORMATION
  Report Type: Spontaneous
  Country: DE (occurrence: DE)
  Receive Date: 20220923
  Receipt Date: 20220923
  Transmission Date: 20221027
  Serious: Yes (Hospitalization)
  Sender: FDA-Public Use
  Company Number: None

PATIENT
  Age: 67 Year
  Sex: Male
  Weight: 98 kg

DRUGS (10)
  1. GABAPENTIN [Suspect]
     Active Substance: GABAPENTIN
     Dosage: 100 MG, 4X/DAY, 1-1-2-0, TABLET (UNSPECIFIED)
     Route: 048
  2. SERTRALINE HYDROCHLORIDE [Interacting]
     Active Substance: SERTRALINE HYDROCHLORIDE
     Dosage: 100 MG, DAILY, 1-0-0-0, TABLET (UNSPECIFIED)
     Route: 048
  3. PROTHIPENDYL HYDROCHLORIDE [Interacting]
     Active Substance: PROTHIPENDYL HYDROCHLORIDE
     Dosage: 40 MG, DAILY, 0-0-1-0
     Route: 048
  4. PHENPROCOUMON [Concomitant]
     Active Substance: PHENPROCOUMON
     Dosage: 3 MG, 1X/DAY, ACCORDING TO INR
     Route: 048
  5. MIRTAZAPINE [Concomitant]
     Active Substance: MIRTAZAPINE
     Dosage: 30 MG, DAILY, 0-0-1-0
     Route: 048
  6. SIMVASTATIN [Concomitant]
     Active Substance: SIMVASTATIN
     Dosage: 40 MG, DAILY, 0-0-1-0
     Route: 048
  7. METOPROLOL TARTRATE [Concomitant]
     Active Substance: METOPROLOL TARTRATE
     Dosage: 50 MG, 2X/DAY, 1-0-1-0
     Route: 048
  8. cyanocobalamin (Vitamin B12) [Concomitant]
     Dosage: UNK, 2X/WEEK, WED + SUN
  9. TORSEMIDE [Concomitant]
     Active Substance: TORSEMIDE
     Dosage: 10 MG, DAILY, 0-0-1-0
     Route: 048
  10. PANTOPRAZOLE [Concomitant]
     Active Substance: PANTOPRAZOLE
     Dosage: 20 MG, DAILY, 1-0-0-0
     Route: 048

REACTIONS (3)
  - Product monitoring error [Unknown]
  - Gait disturbance [Unknown]
  - Labelled drug-drug interaction medication error [Unknown]

NARRATIVE: CASE EVENT DATE: 20210619
